FAERS Safety Report 20236921 (Version 1)
Quarter: 2021Q4

REPORT INFORMATION
  Report Type: Spontaneous
  Country: CN (occurrence: CN)
  Receive Date: 20211228
  Receipt Date: 20211228
  Transmission Date: 20220303
  Serious: Yes (Disabling)
  Sender: FDA-Public Use
  Company Number: CN-BRISTOL-MYERS SQUIBB COMPANY-BMS-2021-139131

PATIENT
  Age: 80 Year
  Sex: Male
  Weight: 70 kg

DRUGS (2)
  1. OPDIVO [Suspect]
     Active Substance: NIVOLUMAB
     Indication: Squamous cell carcinoma of lung
     Dosage: 240MG VD, Q2W
     Route: 041
     Dates: start: 20201029
  2. OPDIVO [Suspect]
     Active Substance: NIVOLUMAB
     Dosage: D1, 200MG INTRAVENOUS INFUSION
     Route: 041
     Dates: start: 20201105, end: 20211026

REACTIONS (3)
  - Blood glucose increased [Recovering/Resolving]
  - Pancreatic injury [Unknown]
  - Prescribed underdose [Unknown]

NARRATIVE: CASE EVENT DATE: 20211106
